FAERS Safety Report 18172838 (Version 2)
Quarter: 2020Q3

REPORT INFORMATION
  Report Type: Spontaneous
  Country: US (occurrence: US)
  Receive Date: 20200820
  Receipt Date: 20200903
  Transmission Date: 20201103
  Serious: No
  Sender: FDA-Public Use
  Company Number: US-ALEOR DERMACEUTICALS LTD-2020SCAL000366

PATIENT

DRUGS (1)
  1. CLOBETASOL PROPIONATE. [Suspect]
     Active Substance: CLOBETASOL PROPIONATE
     Indication: ECZEMA
     Dosage: UNK UNK, SINGLE
     Route: 062
     Dates: start: 20200806, end: 20200806

REACTIONS (3)
  - Application site discolouration [Recovered/Resolved]
  - Product physical consistency issue [Unknown]
  - Application site dryness [Recovered/Resolved]

NARRATIVE: CASE EVENT DATE: 20200806
